FAERS Safety Report 25835715 (Version 2)
Quarter: 2025Q4

REPORT INFORMATION
  Report Type: Report from Study
  Country: US (occurrence: US)
  Receive Date: 20250923
  Receipt Date: 20251001
  Transmission Date: 20260118
  Serious: Yes (Life-Threatening, Other)
  Sender: NOVARTIS
  Company Number: US-002147023-NVSC2025US148156

PATIENT
  Sex: Female

DRUGS (2)
  1. KESIMPTA [Suspect]
     Active Substance: OFATUMUMAB
     Indication: Multiple sclerosis
     Dosage: 20 MG, OTHER,ONCE A WEEK FOR 3 WEEKS, SKIP WEEK 4, WEEK 5 START MONTHLY
     Route: 058
     Dates: start: 20250918
  2. KESIMPTA [Suspect]
     Active Substance: OFATUMUMAB
     Dosage: 20 MG, QMO
     Route: 058

REACTIONS (7)
  - Feeling abnormal [Recovering/Resolving]
  - Multiple sclerosis relapse [Recovering/Resolving]
  - Asthenia [Recovering/Resolving]
  - Mobility decreased [Recovering/Resolving]
  - Influenza [Recovering/Resolving]
  - Chills [Recovered/Resolved]
  - Adverse drug reaction [Unknown]
